FAERS Safety Report 23203361 (Version 2)
Quarter: 2024Q1

REPORT INFORMATION
  Report Type: Spontaneous
  Country: US (occurrence: US)
  Receive Date: 20231120
  Receipt Date: 20240110
  Transmission Date: 20240409
  Serious: No
  Sender: FDA-Public Use
  Company Number: US-TOLMAR, INC.-23US044469

PATIENT
  Sex: Female

DRUGS (2)
  1. ELIGARD [Suspect]
     Active Substance: LEUPROLIDE ACETATE
     Indication: Product used for unknown indication
     Dosage: 30 MILLIGRAM
     Dates: start: 20231102
  2. DEVICE [Suspect]
     Active Substance: DEVICE
     Indication: Product used for unknown indication
     Dosage: UNK

REACTIONS (3)
  - Wrong technique in product usage process [Unknown]
  - Occupational exposure to product [Unknown]
  - Injury associated with device [Unknown]

NARRATIVE: CASE EVENT DATE: 20231102
